FAERS Safety Report 25196632 (Version 1)
Quarter: 2025Q2

REPORT INFORMATION
  Report Type: Spontaneous
  Country: US (occurrence: US)
  Receive Date: 20250415
  Receipt Date: 20250415
  Transmission Date: 20250717
  Serious: Yes (Life-Threatening, Hospitalization, Other)
  Sender: UNICHEM
  Company Number: US-UNICHEM LABORATORIES LIMITED-UNI-2025-US-001807

PATIENT

DRUGS (1)
  1. AMIODARONE [Suspect]
     Active Substance: AMIODARONE
     Indication: Ischaemic cardiomyopathy
     Route: 065

REACTIONS (7)
  - Hypoxia [Not Recovered/Not Resolved]
  - Ventricular tachycardia [Unknown]
  - Mental status changes [Not Recovered/Not Resolved]
  - Aortic valve incompetence [Unknown]
  - Toxicity to various agents [Unknown]
  - Thyroiditis [Unknown]
  - Thyrotoxic crisis [Unknown]
